FAERS Safety Report 4802128-0 (Version None)
Quarter: 2005Q4

REPORT INFORMATION
  Report Type: 
  Country: None (occurrence: None)
  Receive Date: 20051018
  Receipt Date: 20050920
  Transmission Date: 20060501
  Serious: Yes (Other)
  Sender: FDA-Public Use
  Company Number: PHEH2005US10530

PATIENT
  Age: 73 Year
  Sex: Female

DRUGS (7)
  1. COZAAR [Suspect]
     Indication: HYPERTENSION
     Dates: start: 20050301, end: 20050919
  2. GLUCOPHAGE [Concomitant]
  3. CHOLESTEROL- AND TRIGLYCERIDE REDUCERS [Concomitant]
  4. LASIX [Concomitant]
     Dosage: 20 MG, UNK
     Dates: start: 20050917
  5. LASIX [Concomitant]
     Dosage: 40 MG, UNK
     Dates: start: 20050921
  6. LOTREL [Suspect]
     Indication: HYPERTENSION
     Dosage: UNK, UNK
     Dates: start: 20050401, end: 20050919
  7. MICRONASE [Concomitant]
     Indication: DIABETES MELLITUS
     Dosage: 5 MG, QID
     Route: 048

REACTIONS (15)
  - CARDIAC FAILURE CONGESTIVE [None]
  - CARDIAC MURMUR [None]
  - CHEST PAIN [None]
  - COUGH [None]
  - DRUG INEFFECTIVE [None]
  - DYSPNOEA [None]
  - DYSPNOEA EXERTIONAL [None]
  - HEADACHE [None]
  - MITRAL VALVE INCOMPETENCE [None]
  - MYOCARDIAL INFARCTION [None]
  - OEDEMA PERIPHERAL [None]
  - ORTHOPNOEA [None]
  - RALES [None]
  - RETCHING [None]
  - VOMITING [None]
